FAERS Safety Report 6660776 (Version 10)
Quarter: 2013Q4

REPORT INFORMATION
  Report Type: Spontaneous
  Country: HR (occurrence: None)
  Receive Date: 20080527
  Receipt Date: 20131122
  Transmission Date: 20140711
  Serious: Yes (Life-Threatening, Hospitalization, Other)
  Sender: FDA-Public Use
  Company Number: POMP-1000170

PATIENT
  Age: 11 Month
  Sex: Female
  Weight: 8.4 kg

DRUGS (6)
  1. MYOZYME [Suspect]
     Indication: GLYCOGEN STORAGE DISEASE TYPE II
     Route: 042
     Dates: start: 20071015, end: 20080513
  2. RITUXIMAB (RITUXIMAB) [Concomitant]
  3. METHOTREXATE [Concomitant]
  4. IMMUNOGLOBULIN HUMAN NORMAL [Concomitant]
  5. DIPHENHYDRAMINE HYDROCHLORIDE [Concomitant]
  6. PREDNISONE [Concomitant]

REACTIONS (21)
  - Bronchial obstruction [None]
  - Hypotonia [None]
  - Hypersensitivity [None]
  - Tachycardia [None]
  - Tachypnoea [None]
  - Oxygen saturation decreased [None]
  - Agitation [None]
  - Blood pressure increased [None]
  - Irritability [None]
  - Pallor [None]
  - Bronchospasm [None]
  - Hypotension [None]
  - Bradycardia [None]
  - Nosocomial infection [None]
  - Left ventricular hypertrophy [None]
  - Respiratory tract infection [None]
  - Respiratory failure [None]
  - Wheezing [None]
  - Infusion related reaction [None]
  - General physical health deterioration [None]
  - Therapeutic response decreased [None]
